FAERS Safety Report 10760156 (Version 2)
Quarter: 2017Q1

REPORT INFORMATION
  Report Type: Other
  Country: US (occurrence: US)
  Receive Date: 20150204
  Receipt Date: 20170210
  Transmission Date: 20170428
  Serious: No
  Sender: FDA-Public Use
  Company Number: US-ACORDA-ACO_101480_2014

PATIENT
  Sex: Female
  Weight: 84.35 kg

DRUGS (6)
  1. AMPYRA [Suspect]
     Active Substance: DALFAMPRIDINE
     Indication: GAIT DISTURBANCE
     Dosage: 10 MG, QD
     Route: 048
  2. ANTIHYPERTENSIVES [Concomitant]
     Active Substance: UNSPECIFIED INGREDIENT
     Indication: HYPERTENSION
     Dosage: UNK
     Route: 065
  3. ANTIDEPRESSANTS [Concomitant]
     Active Substance: UNSPECIFIED INGREDIENT
     Indication: DEPRESSION
     Dosage: UNK
     Route: 065
  4. ANXIOLYTICS [Concomitant]
     Active Substance: UNSPECIFIED INGREDIENT
     Indication: ANXIETY
     Dosage: UNK
     Route: 065
  5. THYROID PREPARATIONS [Concomitant]
     Active Substance: UNSPECIFIED INGREDIENT
     Indication: THYROID DISORDER
     Dosage: UNK
     Route: 065
  6. COPAXONE [Concomitant]
     Active Substance: GLATIRAMER ACETATE
     Indication: PRODUCT USED FOR UNKNOWN INDICATION
     Dosage: UNK
     Route: 065

REACTIONS (4)
  - Fall [Unknown]
  - Drug ineffective [Unknown]
  - Inappropriate schedule of drug administration [Unknown]
  - Balance disorder [Not Recovered/Not Resolved]
